FAERS Safety Report 7351018-0 (Version None)
Quarter: 2011Q1

REPORT INFORMATION
  Report Type: 
  Country: None (occurrence: None)
  Receive Date: 20110314
  Receipt Date: 20090825
  Transmission Date: 20110831
  Serious: Yes (Hospitalization, Other)
  Sender: FDA-Public Use
  Company Number: PHHY2009DE67449

PATIENT

DRUGS (1)
  1. EXTAVIA [Suspect]
     Dosage: UNK
     Route: 058
     Dates: start: 20090516

REACTIONS (4)
  - COUGH [None]
  - NASOPHARYNGITIS [None]
  - OSTEOPOROSIS [None]
  - MUSCULOSKELETAL DISCOMFORT [None]
